FAERS Safety Report 14270307 (Version 1)
Quarter: 2017Q4

REPORT INFORMATION
  Report Type: Spontaneous
  Country: JP (occurrence: JP)
  Receive Date: 20171211
  Receipt Date: 20171211
  Transmission Date: 20180321
  Serious: Yes (Death, Other)
  Sender: FDA-Public Use
  Company Number: JP-OTSUKA-2016_006238

PATIENT
  Age: 64 Year
  Sex: Female
  Weight: 63.3 kg

DRUGS (36)
  1. PAXIL [Concomitant]
     Active Substance: PAROXETINE HYDROCHLORIDE
     Dosage: 37.5 MG, QD
     Route: 048
     Dates: start: 20160217, end: 20160223
  2. REFLEX [Concomitant]
     Active Substance: MIRTAZAPINE
     Indication: PRODUCT USED FOR UNKNOWN INDICATION
     Dosage: 22.5 MG, QD
     Route: 048
     Dates: start: 20160217, end: 20160311
  3. ROZEREM [Concomitant]
     Active Substance: RAMELTEON
     Indication: PRODUCT USED FOR UNKNOWN INDICATION
     Dosage: 8 MG, QD
     Route: 048
     Dates: start: 20160217, end: 20160311
  4. PAROXETINE. [Concomitant]
     Active Substance: PAROXETINE
     Dosage: 25 MG, QD
     Route: 048
     Dates: start: 20160210, end: 20160216
  5. TRAZODONE [Concomitant]
     Active Substance: TRAZODONE HYDROCHLORIDE
     Indication: PRODUCT USED FOR UNKNOWN INDICATION
     Dosage: UNK
     Route: 065
     Dates: start: 20151125, end: 20151223
  6. PAXIL [Concomitant]
     Active Substance: PAROXETINE HYDROCHLORIDE
     Indication: PRODUCT USED FOR UNKNOWN INDICATION
     Dosage: 50 MG, QD
     Route: 048
     Dates: start: 20160224, end: 20160311
  7. LUDIOMIL [Concomitant]
     Active Substance: MAPROTILINE HYDROCHLORIDE
     Indication: PRODUCT USED FOR UNKNOWN INDICATION
     Dosage: 10 MG, QD
     Route: 065
     Dates: start: 20160224, end: 20160301
  8. ABILIFY [Suspect]
     Active Substance: ARIPIPRAZOLE
     Dosage: 3 MG, QD
     Route: 048
     Dates: start: 20151230
  9. EURODIN [Concomitant]
     Dosage: 1 MG, QD
     Route: 048
     Dates: start: 20151125, end: 20151201
  10. REFLEX [Concomitant]
     Active Substance: MIRTAZAPINE
     Dosage: 7.5 MG, QD
     Route: 048
     Dates: start: 20151206, end: 20151215
  11. TRAZODONE HYDROCHLORIDE. [Concomitant]
     Active Substance: TRAZODONE HYDROCHLORIDE
     Dosage: 75 MG, QD
     Route: 065
     Dates: start: 20151202, end: 20151205
  12. LUDIOMIL [Concomitant]
     Active Substance: MAPROTILINE HYDROCHLORIDE
     Dosage: 20 MG, QD
     Route: 065
     Dates: start: 2015, end: 20151108
  13. LUDIOMIL [Concomitant]
     Active Substance: MAPROTILINE HYDROCHLORIDE
     Dosage: 60 MG, QD
     Route: 065
     Dates: start: 20151109, end: 20160202
  14. PAROXETINE. [Concomitant]
     Active Substance: PAROXETINE
     Dosage: 12.5 MG, QD
     Route: 048
     Dates: start: 20160203, end: 20160209
  15. REFLEX [Concomitant]
     Active Substance: MIRTAZAPINE
     Dosage: 15 MG, QD
     Route: 048
     Dates: start: 20151216, end: 20151222
  16. TRAZODONE HYDROCHLORIDE. [Concomitant]
     Active Substance: TRAZODONE HYDROCHLORIDE
     Dosage: 50 MG, QD
     Route: 065
     Dates: start: 20151206, end: 20151215
  17. LUDIOMIL [Concomitant]
     Active Substance: MAPROTILINE HYDROCHLORIDE
     Dosage: 20 MG, QD
     Route: 065
     Dates: start: 20160217, end: 20160223
  18. ABILIFY [Suspect]
     Active Substance: ARIPIPRAZOLE
     Indication: DEPRESSION
     Dosage: 1.5 MG, QD
     Route: 048
     Dates: start: 20151216, end: 20160311
  19. PAXIL [Concomitant]
     Active Substance: PAROXETINE HYDROCHLORIDE
     Dosage: 25 MG, QD
     Route: 048
     Dates: start: 20160210, end: 20160216
  20. LUDIOMIL [Concomitant]
     Active Substance: MAPROTILINE HYDROCHLORIDE
     Dosage: 40 MG, QD
     Route: 065
     Dates: start: 20160210, end: 20160216
  21. MIRTAZAPINE. [Concomitant]
     Active Substance: MIRTAZAPINE
     Indication: PRODUCT USED FOR UNKNOWN INDICATION
     Dosage: 22.5 MG, QD
     Route: 048
     Dates: start: 20160217, end: 20160311
  22. PAROXETINE. [Concomitant]
     Active Substance: PAROXETINE
     Indication: PRODUCT USED FOR UNKNOWN INDICATION
     Dosage: 50 MG, QD
     Route: 048
     Dates: start: 20160224, end: 20160311
  23. REFLEX                             /00021218/ [Concomitant]
     Active Substance: PICOLAMINE SALICYLATE
     Indication: PRODUCT USED FOR UNKNOWN INDICATION
     Dosage: UNK
     Route: 065
     Dates: start: 20151206, end: 20160311
  24. PAXIL [Concomitant]
     Active Substance: PAROXETINE HYDROCHLORIDE
     Dosage: 12.5 MG, QD
     Route: 048
     Dates: start: 20160203, end: 20160209
  25. REFLEX [Concomitant]
     Active Substance: MIRTAZAPINE
     Dosage: 22.5 MG, QD
     Route: 048
     Dates: start: 20151223, end: 20160119
  26. REFLEX [Concomitant]
     Active Substance: MIRTAZAPINE
     Dosage: 30 MG, QD
     Route: 048
     Dates: start: 20160120, end: 20160216
  27. TRAZODONE HYDROCHLORIDE. [Concomitant]
     Active Substance: TRAZODONE HYDROCHLORIDE
     Indication: PRODUCT USED FOR UNKNOWN INDICATION
     Dosage: 25 MG, QD
     Route: 065
     Dates: start: 20151216, end: 20151223
  28. MIRTAZAPINE. [Concomitant]
     Active Substance: MIRTAZAPINE
     Dosage: 7.5 MG, QD
     Route: 048
     Dates: start: 20151206, end: 20151215
  29. MIRTAZAPINE. [Concomitant]
     Active Substance: MIRTAZAPINE
     Dosage: 30 MG, QD
     Route: 048
     Dates: start: 20160120, end: 20160216
  30. EURODIN [Concomitant]
     Indication: PRODUCT USED FOR UNKNOWN INDICATION
     Dosage: 0.5 MG, QD
     Route: 048
     Dates: start: 20151202, end: 20160311
  31. TRAZODONE HYDROCHLORIDE. [Concomitant]
     Active Substance: TRAZODONE HYDROCHLORIDE
     Dosage: 50 MG, QD
     Route: 065
     Dates: start: 20151125, end: 20151201
  32. LUDIOMIL [Concomitant]
     Active Substance: MAPROTILINE HYDROCHLORIDE
     Dosage: 60 MG, QD
     Route: 065
     Dates: start: 1995
  33. LUDIOMIL [Concomitant]
     Active Substance: MAPROTILINE HYDROCHLORIDE
     Dosage: 50 MG, QD
     Route: 065
     Dates: start: 20160203, end: 20160209
  34. MIRTAZAPINE. [Concomitant]
     Active Substance: MIRTAZAPINE
     Dosage: 15 MG, QD
     Route: 048
     Dates: start: 20151216, end: 20151222
  35. MIRTAZAPINE. [Concomitant]
     Active Substance: MIRTAZAPINE
     Dosage: 22.5 MG, QD
     Route: 048
     Dates: start: 20151223, end: 20160119
  36. PAROXETINE. [Concomitant]
     Active Substance: PAROXETINE
     Dosage: 37.5 MG, QD
     Route: 048
     Dates: start: 20160217, end: 20160223

REACTIONS (1)
  - Completed suicide [Fatal]

NARRATIVE: CASE EVENT DATE: 20160311
